FAERS Safety Report 12306926 (Version 1)
Quarter: 2016Q2

REPORT INFORMATION
  Report Type: Spontaneous
  Country: None (occurrence: TR)
  Receive Date: 20160426
  Receipt Date: 20160426
  Transmission Date: 20160815
  Serious: Yes (Hospitalization, Other)
  Sender: FDA-Public Use
  Company Number: TR-BAUSCH-BL-2016-009775

PATIENT

DRUGS (2)
  1. DEXAMETHASONE. [Suspect]
     Active Substance: DEXAMETHASONE
     Indication: MACULAR OEDEMA
     Dosage: INTRAVITREAL IMPLANT INJECTION
     Route: 047
  2. DEXAMETHASONE. [Suspect]
     Active Substance: DEXAMETHASONE
     Indication: DIABETIC NEPHROPATHY
     Dosage: INTRAVITREAL IMPLANT INJECTION

REACTIONS (1)
  - Endophthalmitis [Recovered/Resolved]
